FAERS Safety Report 18298479 (Version 1)
Quarter: 2020Q3

REPORT INFORMATION
  Report Type: Spontaneous
  Country: US (occurrence: US)
  Receive Date: 20200922
  Receipt Date: 20200922
  Transmission Date: 20201103
  Serious: Yes (Other)
  Sender: FDA-Public Use
  Company Number: US-PFIZER INC-2017465014

PATIENT
  Age: 32 Year
  Sex: Male
  Weight: 126.98 kg

DRUGS (1)
  1. XYNTHA [Suspect]
     Active Substance: ANTIHEMOPHILIC FACTOR, HUMAN RECOMBINANT RESIDUES 743-1636 DELETED
     Indication: FACTOR VIII DEFICIENCY
     Dosage: UNK (INFUSE 2170 UNITS (+/?10% INTRAVENOUSLY AS NEEDED FOR MILD BLEEDS, INFUSE 4340 UNITS (+/?10% IN
     Route: 042
     Dates: start: 201902

REACTIONS (1)
  - Haemarthrosis [Unknown]
